FAERS Safety Report 12186571 (Version 2)
Quarter: 2016Q2

REPORT INFORMATION
  Report Type: Report from Study
  Country: US (occurrence: US)
  Receive Date: 20160317
  Receipt Date: 20160425
  Transmission Date: 20160815
  Serious: No
  Sender: FDA-Public Use
  Company Number: PHEH2016US006096

PATIENT
  Age: 89 Year
  Sex: Male
  Weight: 63.39 kg

DRUGS (20)
  1. ENTRESTO [Suspect]
     Active Substance: SACUBITRIL\VALSARTAN
     Indication: CARDIAC FAILURE CONGESTIVE
     Dosage: 50 MG (24/26), BID
     Route: 048
  2. ENTRESTO [Suspect]
     Active Substance: SACUBITRIL\VALSARTAN
     Dosage: 49/51 MG, BID
     Route: 048
  3. DIGOX//DIGOXIN [Concomitant]
     Indication: ATRIOVENTRICULAR BLOCK SECOND DEGREE
     Dosage: 125 MG, QD
     Route: 048
  4. ASPIRIN//ACETYLSALICYLIC ACID [Concomitant]
     Active Substance: ASPIRIN
     Indication: PRODUCT USED FOR UNKNOWN INDICATION
     Dosage: 4 DF, QD
     Route: 065
     Dates: start: 2011
  5. ENTRESTO [Suspect]
     Active Substance: SACUBITRIL\VALSARTAN
     Dosage: 24/26 MG,BID
     Route: 065
     Dates: start: 20160303
  6. FAMOTIDINE. [Concomitant]
     Active Substance: FAMOTIDINE
     Indication: PRODUCT USED FOR UNKNOWN INDICATION
     Dosage: 20 MG, BID
     Route: 048
     Dates: start: 2010
  7. VITAMIN D [Concomitant]
     Active Substance: CHOLECALCIFEROL
     Indication: PRODUCT USED FOR UNKNOWN INDICATION
     Route: 065
  8. FISH OIL [Concomitant]
     Active Substance: FISH OIL
     Indication: PRODUCT USED FOR UNKNOWN INDICATION
     Dosage: UNK
     Route: 065
  9. COENZYME Q10 [Concomitant]
     Active Substance: UBIDECARENONE
     Indication: SUPPLEMENTATION THERAPY
     Dosage: 200 MG, QD
     Route: 048
     Dates: start: 2011
  10. VITAMIN C [Concomitant]
     Active Substance: ASCORBIC ACID
     Indication: PRODUCT USED FOR UNKNOWN INDICATION
     Route: 065
  11. MULTIVITAMINS [Concomitant]
     Active Substance: VITAMINS
     Indication: PRODUCT USED FOR UNKNOWN INDICATION
     Dosage: UNK UNK, QD
     Route: 065
  12. CALCIUM +D3 [Concomitant]
     Active Substance: CALCIUM\CHOLECALCIFEROL
     Indication: PRODUCT USED FOR UNKNOWN INDICATION
     Route: 065
  13. GLUCOSAMINE [Concomitant]
     Active Substance: GLUCOSAMINE
     Indication: PRODUCT USED FOR UNKNOWN INDICATION
     Route: 065
  14. ISOSORBIDE. [Concomitant]
     Active Substance: ISOSORBIDE
     Indication: CARDIAC FAILURE CONGESTIVE
     Dosage: 30 MG, QD
     Route: 048
     Dates: start: 2010
  15. CARVEDILOL. [Concomitant]
     Active Substance: CARVEDILOL
     Indication: CARDIAC FAILURE CONGESTIVE
     Dosage: 25 MG, BID
     Route: 065
     Dates: start: 2008
  16. NIACIN. [Concomitant]
     Active Substance: NIACIN
     Indication: VITAMIN SUPPLEMENTATION
     Dosage: 4 DF, UNK
     Route: 048
     Dates: start: 2010
  17. CRESTOR [Concomitant]
     Active Substance: ROSUVASTATIN CALCIUM
     Indication: DYSLIPIDAEMIA
     Dosage: 5 MG, QD
     Route: 048
     Dates: start: 2015
  18. TORSEMIDE. [Concomitant]
     Active Substance: TORSEMIDE
     Indication: CARDIAC FAILURE CONGESTIVE
     Dosage: 20 MG, QOD
     Route: 048
     Dates: start: 2015
  19. COQ 10 [Concomitant]
     Active Substance: UBIDECARENONE
     Indication: PRODUCT USED FOR UNKNOWN INDICATION
     Dosage: 300 MG, UNK
     Route: 065
  20. VITAMIN E [Concomitant]
     Active Substance: .ALPHA.-TOCOPHEROL
     Indication: PRODUCT USED FOR UNKNOWN INDICATION
     Dosage: 400 MG, UNK
     Route: 065

REACTIONS (2)
  - Diarrhoea [Recovered/Resolved]
  - Dysstasia [Recovered/Resolved]

NARRATIVE: CASE EVENT DATE: 20160203
